FAERS Safety Report 25395864 (Version 3)
Quarter: 2025Q3

REPORT INFORMATION
  Report Type: Spontaneous
  Country: JP (occurrence: JP)
  Receive Date: 20250604
  Receipt Date: 20250709
  Transmission Date: 20251021
  Serious: Yes (Other)
  Sender: BOEHRINGER INGELHEIM
  Company Number: JP-NBI-2025-BI-073966

PATIENT
  Age: 64 Year
  Sex: Male

DRUGS (2)
  1. OFEV [Suspect]
     Active Substance: NINTEDANIB
     Indication: Idiopathic pulmonary fibrosis
  2. OFEV [Suspect]
     Active Substance: NINTEDANIB
     Indication: Idiopathic interstitial pneumonia

REACTIONS (1)
  - Complications of transplanted lung [Unknown]
